FAERS Safety Report 8185548-9 (Version None)
Quarter: 2012Q1

REPORT INFORMATION
  Report Type: 
  Country: None (occurrence: None)
  Receive Date: 20120305
  Receipt Date: 20120223
  Transmission Date: 20120608
  Serious: Yes (Other)
  Sender: FDA-Public Use
  Company Number: US-ELI_LILLY_AND_COMPANY-US201007007157

PATIENT
  Sex: Male

DRUGS (5)
  1. HUMALOG MIX 75/25 [Suspect]
     Dosage: 90 U, EACH EVENING
  2. HUMULIN N [Suspect]
     Indication: TYPE 2 DIABETES MELLITUS
  3. GLUCOPHAGE [Concomitant]
     Dosage: 500 MG, BID
  4. HUMALOG MIX 75/25 [Suspect]
     Dosage: 80 U, EACH MORNING
  5. HUMULIN R [Suspect]
     Indication: TYPE 2 DIABETES MELLITUS

REACTIONS (5)
  - EYE DISORDER [None]
  - LIMB DISCOMFORT [None]
  - BRAIN NEOPLASM BENIGN [None]
  - ARTHROPATHY [None]
  - ASTHMA [None]
